FAERS Safety Report 6913892-9 (Version None)
Quarter: 2010Q3

REPORT INFORMATION
  Report Type: 
  Country: None (occurrence: None)
  Receive Date: 20100809
  Receipt Date: 20100804
  Transmission Date: 20110219
  Serious: Yes (Other)
  Sender: FDA-Public Use
  Company Number: JP-BAYER-201013970BYL

PATIENT
  Sex: Male

DRUGS (4)
  1. ASPIRIN [Suspect]
     Indication: PRODUCT USED FOR UNKNOWN INDICATION
     Route: 048
     Dates: end: 20100802
  2. PANALDINE [Concomitant]
     Route: 048
     Dates: end: 20100401
  3. PLAVIX [Concomitant]
     Route: 048
     Dates: start: 20100401, end: 20100601
  4. PLAVIX [Concomitant]
     Route: 048
     Dates: start: 20100802

REACTIONS (2)
  - HAEMORRHAGE SUBCUTANEOUS [None]
  - PLATELET COUNT DECREASED [None]
